FAERS Safety Report 9760233 (Version 1)
Quarter: 2013Q4

REPORT INFORMATION
  Report Type: Spontaneous
  Country: US (occurrence: US)
  Receive Date: 20131216
  Receipt Date: 20131216
  Transmission Date: 20140711
  Serious: No
  Sender: FDA-Public Use
  Company Number: US-GILEAD-2010-0028398

PATIENT
  Sex: Female
  Weight: 102.51 kg

DRUGS (12)
  1. LETAIRIS [Suspect]
     Indication: PULMONARY ARTERIAL HYPERTENSION
     Route: 048
     Dates: start: 20100317, end: 20100401
  2. RIBAVIRIN [Concomitant]
  3. LEVOTHYROXINE [Concomitant]
  4. ACETAMINOPHEN [Concomitant]
  5. NADOLOL [Concomitant]
  6. VITAMIN A [Concomitant]
  7. DIGOXIN [Concomitant]
  8. SPIRONOLACTONE [Concomitant]
  9. PREVACID [Concomitant]
  10. VITAMIN D [Concomitant]
  11. DAILY MULTIVITAMIN [Concomitant]
  12. ZINC SULFATE [Concomitant]

REACTIONS (2)
  - Migraine [Unknown]
  - Nausea [Unknown]
